FAERS Safety Report 5916185-1 (Version None)
Quarter: 2008Q4

REPORT INFORMATION
  Report Type: 
  Country: None (occurrence: None)
  Receive Date: 20081013
  Receipt Date: 20081002
  Transmission Date: 20090506
  Serious: Yes (Hospitalization)
  Sender: FDA-Public Use
  Company Number: JP-SOLVAY-00308004673

PATIENT
  Age: 27211 Day
  Sex: Female
  Weight: 34 kg

DRUGS (24)
  1. URSO 250 [Concomitant]
     Indication: DRUG USE FOR UNKNOWN INDICATION
     Dosage: DAILY DOSE: 300 MILLIGRAM(S)
     Route: 048
     Dates: start: 20080430
  2. CREON [Suspect]
     Indication: PANCREATECTOMY
     Dosage: DAILY DOSE: 12 DOSAGE FORM
     Route: 048
     Dates: start: 20080430
  3. CREON [Suspect]
     Dosage: DAILY DOSE: 2 DOSAGE FORM; FREQUENCY: AS NEEDED
     Route: 048
     Dates: start: 20080430
  4. BIO-THREE [Concomitant]
     Indication: DIARRHOEA
     Dosage: DAILY DOSE: 1.5 GRAM(S)
     Route: 048
     Dates: start: 20080430
  5. GASMOTIN [Concomitant]
     Indication: GASTRITIS ATROPHIC
     Dosage: DAILY DOSE: 15 MILLIGRAM(S)
     Route: 048
     Dates: start: 20080430
  6. ALTAT [Concomitant]
     Indication: GASTRITIS ATROPHIC
     Dosage: DAILY DOSE: 150 MILLIGRAM(S)
     Route: 048
     Dates: start: 20080430
  7. GASTROM [Concomitant]
     Indication: GASTRITIS ATROPHIC
     Dosage: DAILY DOSE: 3 GRAM(S)
     Route: 048
     Dates: start: 20080430
  8. MUCOSTA [Concomitant]
     Indication: GASTRITIS ATROPHIC
     Dosage: DAILY DOSE: 300 MILLIGRAM(S)
     Route: 048
     Dates: start: 20080430
  9. LOPECALD [Concomitant]
     Indication: DIARRHOEA
     Dosage: DAILY DOSE: 2 MILLIGRAM(S)
     Route: 048
     Dates: start: 20080430
  10. TS-1 [Concomitant]
     Indication: PANCREATIC CARCINOMA
     Dosage: DAILY DOSE: 3 DOSAGE FORM
     Route: 048
     Dates: start: 20080430, end: 20080527
  11. TS-1 [Concomitant]
     Dosage: DAILY DOSE: 3 DOSAGE FORM
     Route: 048
     Dates: start: 20080625, end: 20080722
  12. CYANOCOBALAMIN [Concomitant]
     Indication: ANGLE CLOSURE GLAUCOMA
     Dosage: DAILY DOSE: 1.5 GRAM(S)
     Route: 048
     Dates: start: 20080430
  13. KALLIKREIN [Concomitant]
     Indication: ANGLE CLOSURE GLAUCOMA
     Dosage: DAILY DOSE: 30 INTERNATIONAL UNIT(S)
     Route: 048
     Dates: start: 20080430
  14. JOLETHIN [Concomitant]
     Indication: ANGLE CLOSURE GLAUCOMA
     Dosage: DAILY DOSE: 600 MICROGRAM(S)
     Route: 048
     Dates: start: 20080430
  15. KARY UNI [Concomitant]
     Indication: CATARACT
     Dosage: DAILY DOSE:  ADEQUATE DOSE; FREQUENCY: FOUR TIMES A DAY
     Route: 031
     Dates: start: 20080430
  16. HYALEIN [Concomitant]
     Indication: DRY EYE
     Dosage: DAILY DOSE:  ADEQUATE DOSE; FREQUENCY: FOUR TIMES A DAY
     Route: 031
     Dates: start: 20080430
  17. ELCITONIN [Concomitant]
     Indication: OSTEOPOROSIS
     Dosage: DAILY DOSE: 1 DOSAGE FORM; FREQUENCY: ONCE A WEEK
     Route: 030
     Dates: start: 20080101
  18. SOLITA-T1 INJECTION [Concomitant]
     Indication: ENTEROCOLITIS VIRAL
     Dosage: DAILY DOSE: 200 MILLILITRE(S), FREQUENCY: ONCE.
     Route: 042
     Dates: start: 20080723, end: 20080723
  19. BUSCOPAN [Concomitant]
     Indication: DIAGNOSTIC PROCEDURE
     Dosage: DAILY DOSE: 1 DOSAGE FORM, FREQUENCY: ONCE.
     Route: 030
     Dates: start: 20080925, end: 20080925
  20. GLUCAGON [Concomitant]
     Indication: DIAGNOSTIC PROCEDURE
     Dosage: DAILY DOSE: 1 DOSAGE FORM, FREQUENCY: ONCE.
     Route: 030
     Dates: start: 20080925, end: 20080925
  21. XYLOCAINE [Concomitant]
     Indication: DIAGNOSTIC PROCEDURE
     Dosage: DAILY DOSE: 5 MILLILITRE(S), FREQUENCY: ONCE.
     Route: 065
     Dates: start: 20080925, end: 20080925
  22. JUSO [Concomitant]
     Indication: DIAGNOSTIC PROCEDURE
     Dosage: DAILY DOSE: 1 GRAM(S), FREQUENCY: ONCE.
     Route: 048
     Dates: start: 20080925, end: 20080925
  23. PRONASE MS [Concomitant]
     Indication: DIAGNOSTIC PROCEDURE
     Dosage: DAILY DOSE: 2000 INTERNATIONAL UNIT(S), FREQUENCY: ONCE.
     Route: 048
     Dates: start: 20080925, end: 20080925
  24. BAROS ANTIFOAMING [Concomitant]
     Indication: DIAGNOSTIC PROCEDURE
     Dosage: DAILY DOSE: 10 MILLILITRE(S), FREQUENCY: ONCE.
     Route: 048
     Dates: start: 20080925, end: 20080925

REACTIONS (1)
  - ASCITES [None]
